FAERS Safety Report 7027648-2 (Version None)
Quarter: 2010Q4

REPORT INFORMATION
  Report Type: 
  Country: None (occurrence: None)
  Receive Date: 20101004
  Receipt Date: 20100921
  Transmission Date: 20110411
  Serious: Yes (Death)
  Sender: FDA-Public Use
  Company Number: GB-WATSON-2010-13008

PATIENT
  Age: 80 Year
  Sex: Female

DRUGS (3)
  1. PREDNISOLONE [Suspect]
     Indication: TEMPORAL ARTERITIS
     Dosage: 40 MG, DAILY
  2. PREDNISOLONE [Suspect]
     Dosage: 60 MG, DAILY
  3. METHYLPREDNISOLONE ACETATE [Suspect]
     Indication: PRODUCT USED FOR UNKNOWN INDICATION
     Dosage: ONE SINGLE DOSE
     Route: 042

REACTIONS (1)
  - CEREBROVASCULAR ACCIDENT [None]
